FAERS Safety Report 17149720 (Version 1)
Quarter: 2019Q4

REPORT INFORMATION
  Report Type: Spontaneous
  Country: CA (occurrence: CA)
  Receive Date: 20191213
  Receipt Date: 20191213
  Transmission Date: 20200122
  Serious: Yes (Death)
  Sender: FDA-Public Use
  Company Number: CA-ASTRAZENECA-2019SF79229

PATIENT
  Sex: Female

DRUGS (13)
  1. ERGOCALCIFEROL. [Suspect]
     Active Substance: ERGOCALCIFEROL
  2. THIAMINE HYDROCHLORIDE. [Suspect]
     Active Substance: THIAMINE HYDROCHLORIDE
     Route: 065
  3. VITAMIN C [Suspect]
     Active Substance: ASCORBIC ACID
     Route: 065
  4. PROPRANOLOL [Suspect]
     Active Substance: PROPRANOLOL HYDROCHLORIDE
     Route: 065
  5. FOLIC ACID. [Suspect]
     Active Substance: FOLIC ACID
     Route: 065
  6. RIBOFLAVIN [Suspect]
     Active Substance: RIBOFLAVIN
     Route: 065
  7. CALCIUM CARBONATE. [Suspect]
     Active Substance: CALCIUM CARBONATE
  8. PAMIDRONATE DISODIUM. [Suspect]
     Active Substance: PAMIDRONATE DISODIUM
     Route: 065
  9. NICOTINAMIDE [Suspect]
     Active Substance: NIACINAMIDE
     Route: 065
  10. VITAMIN A [Suspect]
     Active Substance: VITAMIN A
     Route: 065
  11. PANTOPRAZOLE [Suspect]
     Active Substance: PANTOPRAZOLE
     Route: 065
  12. FASLODEX [Suspect]
     Active Substance: FULVESTRANT
     Route: 030
  13. DEXPANTHENOL. [Suspect]
     Active Substance: DEXPANTHENOL
     Route: 065

REACTIONS (1)
  - Death [Fatal]
